FAERS Safety Report 8838609 (Version 1)
Quarter: 2012Q4

REPORT INFORMATION
  Report Type: 
  Country: US (occurrence: US)
  Receive Date: 20121012
  Receipt Date: 20121012
  Transmission Date: 20130627
  Serious: No
  Sender: FDA-Public Use
  Company Number: US-ASTRAZENECA-2012SE77129

PATIENT
  Age: 45 Year
  Sex: Male

DRUGS (2)
  1. LISINOPRIL [Suspect]
     Route: 048
  2. CRESTOR [Suspect]
     Route: 048

REACTIONS (6)
  - Essential hypertension [Unknown]
  - Type V hyperlipidaemia [Unknown]
  - Acute sinusitis [Unknown]
  - Osteoarthritis [Unknown]
  - Arteriosclerosis coronary artery [Unknown]
  - Rash [Unknown]
